FAERS Safety Report 4322112-3 (Version None)
Quarter: 2004Q1

REPORT INFORMATION
  Report Type: 
  Country: None (occurrence: None)
  Receive Date: 20040323
  Receipt Date: 20040316
  Transmission Date: 20041129
  Serious: Yes (Hospitalization)
  Sender: FDA-Public Use
  Company Number: FR-GLAXOSMITHKLINE-B0326881A

PATIENT
  Age: 32 Year
  Sex: Female
  Weight: 60 kg

DRUGS (1)
  1. ZYBAN [Suspect]
     Dosage: 150MG PER DAY
     Route: 048
     Dates: start: 20030926, end: 20031003

REACTIONS (6)
  - ANXIETY [None]
  - LOSS OF CONSCIOUSNESS [None]
  - MALAISE [None]
  - NIGHTMARE [None]
  - TETANY [None]
  - TREMOR [None]
